FAERS Safety Report 4731955-3 (Version None)
Quarter: 2005Q3

REPORT INFORMATION
  Report Type: 
  Country: None (occurrence: None)
  Receive Date: 20050725
  Receipt Date: 20041109
  Transmission Date: 20060218
  Serious: Yes (Disabling)
  Sender: FDA-Public Use
  Company Number: WAES 0411USA01666

PATIENT
  Age: 68 Year
  Sex: Female

DRUGS (6)
  1. VIOXX [Suspect]
     Indication: ARTHRITIS
     Dosage: 25 MG/DAILY/PO
     Route: 048
     Dates: end: 20041001
  2. VIOXX [Suspect]
     Indication: PAIN
     Dosage: 25 MG/DAILY/PO
     Route: 048
     Dates: end: 20041001
  3. DURAGESIC-100 [Concomitant]
  4. HYZAAR [Concomitant]
  5. LIPITOR [Concomitant]
  6. TOPROL-XL [Concomitant]

REACTIONS (1)
  - HYPERTENSION [None]
